FAERS Safety Report 11816143 (Version 7)
Quarter: 2021Q2

REPORT INFORMATION
  Report Type: Report from Study
  Country: US (occurrence: US)
  Receive Date: 20151209
  Receipt Date: 20210607
  Transmission Date: 20210716
  Serious: Yes (Other)
  Sender: FDA-Public Use
  Company Number: US-JAZZ-2015-US-020997

PATIENT
  Age: 17 Year
  Sex: Female

DRUGS (7)
  1. ZIPRASIDONE HYDROCHLORIDE. [Concomitant]
     Active Substance: ZIPRASIDONE HYDROCHLORIDE
     Indication: PRODUCT USED FOR UNKNOWN INDICATION
     Dosage: UNK
     Dates: start: 20140506, end: 20151202
  2. VITAMIN D3 [Concomitant]
     Active Substance: CHOLECALCIFEROL
     Indication: PRODUCT USED FOR UNKNOWN INDICATION
     Dosage: UNK
     Dates: start: 20151118, end: 20151202
  3. ORTHO TRI CYCLEN [Concomitant]
     Active Substance: ETHINYL ESTRADIOL\NORGESTIMATE
     Indication: PRODUCT USED FOR UNKNOWN INDICATION
     Dosage: UNK
     Dates: start: 20141229
  4. ZOLOFT [Concomitant]
     Active Substance: SERTRALINE HYDROCHLORIDE
     Indication: PRODUCT USED FOR UNKNOWN INDICATION
     Dosage: UNK
     Dates: start: 20130901
  5. MODAFINIL. [Concomitant]
     Active Substance: MODAFINIL
     Indication: PRODUCT USED FOR UNKNOWN INDICATION
     Dosage: UNK
     Dates: start: 20121101, end: 20141229
  6. XYREM [Suspect]
     Active Substance: SODIUM OXYBATE
     Indication: NARCOLEPSY
     Dosage: 2.25 GRAM, BID
     Route: 048
     Dates: start: 201311, end: 2014
  7. XYREM [Suspect]
     Active Substance: SODIUM OXYBATE
     Indication: CATAPLEXY
     Dosage: 3 GRAM, BID
     Route: 048
     Dates: start: 2014

REACTIONS (5)
  - Sleep apnoea syndrome [Recovered/Resolved]
  - Pulmonary mass [Recovered/Resolved]
  - Pre-existing condition improved [Unknown]
  - Suicidal ideation [Recovered/Resolved]
  - Depression [Recovering/Resolving]

NARRATIVE: CASE EVENT DATE: 201403
